FAERS Safety Report 24458395 (Version 1)
Quarter: 2024Q4

REPORT INFORMATION
  Report Type: Spontaneous
  Country: LT (occurrence: LT)
  Receive Date: 20241018
  Receipt Date: 20241018
  Transmission Date: 20250115
  Serious: Yes (Other)
  Sender: IPCA
  Company Number: LT-IPCA LABORATORIES LIMITED-IPC-2024-LT-002494

PATIENT

DRUGS (3)
  1. VALPROATE SODIUM [Suspect]
     Active Substance: VALPROATE SODIUM
     Indication: Bipolar disorder
     Dosage: UPTO 1500 MILLIGRAM, QD
     Route: 065
  2. RISPERIDONE [Suspect]
     Active Substance: RISPERIDONE
     Indication: Bipolar disorder
     Dosage: UNK
     Route: 065
  3. ARIPIPRAZOLE [Suspect]
     Active Substance: ARIPIPRAZOLE
     Indication: Bipolar disorder
     Dosage: UPTO 10 MILLIGRAM, QD
     Route: 065

REACTIONS (4)
  - Diarrhoea haemorrhagic [Unknown]
  - Epistaxis [Unknown]
  - Hyperacusis [Unknown]
  - Nasal congestion [Unknown]
